FAERS Safety Report 10688088 (Version 4)
Quarter: 2015Q3

REPORT INFORMATION
  Report Type: Spontaneous
  Country: US (occurrence: US)
  Receive Date: 20150102
  Receipt Date: 20150724
  Transmission Date: 20151125
  Serious: Yes (Hospitalization)
  Sender: FDA-Public Use
  Company Number: US-BAYER-2014-191077

PATIENT
  Age: 26 Year
  Sex: Female
  Weight: 52.15 kg

DRUGS (7)
  1. MIDOL [CAFFEINE,MEPYRAMINE MALEATE,PARACETAMOL] [Concomitant]
     Route: 048
  2. MILK THISTLE [Concomitant]
     Active Substance: MILK THISTLE
     Route: 048
  3. MIRENA [Suspect]
     Active Substance: LEVONORGESTREL
     Indication: CONTRACEPTION
     Dosage: 20 MCG/24HR, CONT
     Route: 015
     Dates: start: 201212, end: 20140707
  4. IBUPROFEN. [Concomitant]
     Active Substance: IBUPROFEN
     Dosage: 600 MG, UNK
     Route: 048
  5. METHYLSULFONYLMETHANE [Concomitant]
     Active Substance: DIMETHYL SULFONE
     Route: 048
  6. MOTRIN [Concomitant]
     Active Substance: IBUPROFEN
     Dosage: 800 MG, UNK
  7. MORPHINE [Concomitant]
     Active Substance: MORPHINE
     Indication: PAIN

REACTIONS (10)
  - Pain [None]
  - Injury [None]
  - Emotional distress [None]
  - Ovarian abscess [None]
  - Pelvic inflammatory disease [None]
  - White blood cell count abnormal [None]
  - Embedded device [None]
  - Infertility female [None]
  - Depression [None]
  - Fallopian tube disorder [Not Recovered/Not Resolved]

NARRATIVE: CASE EVENT DATE: 201407
